FAERS Safety Report 8173950-0 (Version None)
Quarter: 2012Q1

REPORT INFORMATION
  Report Type: 
  Country: None (occurrence: None)
  Receive Date: 20120229
  Receipt Date: 20120227
  Transmission Date: 20120608
  Serious: Yes (Hospitalization)
  Sender: FDA-Public Use
  Company Number: TR-ROCHE-803215

PATIENT
  Sex: Female
  Weight: 127 kg

DRUGS (7)
  1. ALFACALCIDOL [Concomitant]
     Dates: start: 20091110, end: 20110111
  2. CALCIUM ACETATE [Concomitant]
     Dates: start: 20100216, end: 20100524
  3. SEVELAMER HYDROCHLORIDE [Concomitant]
     Dates: start: 20091110, end: 20110111
  4. MIRCERA [Suspect]
     Indication: NEPHROGENIC ANAEMIA
     Dosage: FREQUENCY REPORTED AS 2
     Route: 042
  5. FOLIC ACID [Concomitant]
     Dates: start: 20091110, end: 20110111
  6. FERRIC HYDROXIDE [Concomitant]
     Dosage: DRUG REPORTED AS FERRIC HYDROXIDE DEXTRAN
     Dates: start: 20100622, end: 20101103
  7. VITAMIN B COMPLEX CAP [Concomitant]
     Dates: start: 20091110, end: 20110111

REACTIONS (2)
  - URINARY TRACT INFECTION [None]
  - DEVICE RELATED INFECTION [None]
